FAERS Safety Report 6060031-5 (Version None)
Quarter: 2009Q1

REPORT INFORMATION
  Report Type: 
  Country: None (occurrence: None)
  Receive Date: 20090130
  Receipt Date: 20090126
  Transmission Date: 20090719
  Serious: Yes (Hospitalization)
  Sender: FDA-Public Use
  Company Number: CA-MERCK-0812CAN00100

PATIENT
  Age: 68 Year
  Sex: Female

DRUGS (7)
  1. HYZAAR [Suspect]
     Indication: HYPERTENSION
     Route: 048
     Dates: start: 20081216
  2. NIFEDIPINE [Concomitant]
     Route: 065
  3. DIGOXIN [Concomitant]
     Route: 065
  4. AMIODARONE HYDROCHLORIDE [Concomitant]
     Route: 065
  5. ATORVASTATIN CALCIUM [Concomitant]
     Route: 065
  6. LEVOTHYROXINE SODIUM [Concomitant]
     Route: 065
  7. WARFARIN [Concomitant]
     Route: 065

REACTIONS (3)
  - BLOOD PRESSURE INCREASED [None]
  - JAUNDICE [None]
  - OXYGEN SATURATION DECREASED [None]
